FAERS Safety Report 19116372 (Version 4)
Quarter: 2022Q2

REPORT INFORMATION
  Report Type: Report from Study
  Country: GB (occurrence: GB)
  Receive Date: 20210409
  Receipt Date: 20220514
  Transmission Date: 20220721
  Serious: Yes (Hospitalization, Other)
  Sender: FDA-Public Use
  Company Number: GB-SHIRE-GB202028687

PATIENT
  Sex: Male

DRUGS (5)
  1. HUMAN IMMUNOGLOBULIN G\HYALURONIDASE RECOMBINANT HUMAN [Suspect]
     Active Substance: HUMAN IMMUNOGLOBULIN G\HYALURONIDASE RECOMBINANT HUMAN
     Indication: Chronic obstructive pulmonary disease
     Dosage: 20 GRAM
     Route: 058
     Dates: start: 202008
  2. HUMAN IMMUNOGLOBULIN G\HYALURONIDASE RECOMBINANT HUMAN [Suspect]
     Active Substance: HUMAN IMMUNOGLOBULIN G\HYALURONIDASE RECOMBINANT HUMAN
     Indication: Chronic inflammatory demyelinating polyradiculoneuropathy
     Dosage: 20 GRAM
     Route: 058
     Dates: start: 202008
  3. HUMAN IMMUNOGLOBULIN G\HYALURONIDASE RECOMBINANT HUMAN [Suspect]
     Active Substance: HUMAN IMMUNOGLOBULIN G\HYALURONIDASE RECOMBINANT HUMAN
     Dosage: 100 MILLIGRAM
     Route: 058
     Dates: start: 202008
  4. HUMAN IMMUNOGLOBULIN G\HYALURONIDASE RECOMBINANT HUMAN [Suspect]
     Active Substance: HUMAN IMMUNOGLOBULIN G\HYALURONIDASE RECOMBINANT HUMAN
     Dosage: 100 MG/ML
     Route: 058
     Dates: start: 202008
  5. LORATADINE [Concomitant]
     Active Substance: LORATADINE
     Indication: Product used for unknown indication
     Route: 065

REACTIONS (15)
  - Renal cyst [Unknown]
  - Diabetes mellitus [Unknown]
  - Infusion related reaction [Unknown]
  - Urinary tract infection [Recovering/Resolving]
  - Infusion site pruritus [Unknown]
  - Infusion site swelling [Unknown]
  - Infusion site pain [Unknown]
  - Fatigue [Unknown]
  - Malabsorption [Unknown]
  - Skin infection [Unknown]
  - Infusion site erythema [Unknown]
  - Device issue [Unknown]
  - Incorrect drug administration rate [Unknown]
  - Product use in unapproved indication [Unknown]
  - Wrong technique in product usage process [Unknown]

NARRATIVE: CASE EVENT DATE: 20200801
